FAERS Safety Report 23452348 (Version 1)
Quarter: 2024Q1

REPORT INFORMATION
  Report Type: Spontaneous
  Country: US (occurrence: US)
  Receive Date: 20240129
  Receipt Date: 20240129
  Transmission Date: 20240409
  Serious: No
  Sender: FDA-Public Use
  Company Number: US-PFIZER INC-202400026077

PATIENT
  Age: 78 Year
  Sex: Female

DRUGS (7)
  1. IBRANCE [Suspect]
     Active Substance: PALBOCICLIB
     Dosage: 125 MG, CYCLIC (1 TABLET (125MG) BY MOUTH DAILY FOR 21 DAYS, FOLLOWED BY 7 DAYS OFF)
     Dates: start: 20230901
  2. FULVESTRANT [Concomitant]
     Active Substance: FULVESTRANT
     Dosage: (250MG/5ML INJ, 2X5ML)
  3. XARELTO [Concomitant]
     Active Substance: RIVAROXABAN
     Dosage: UNK
  4. COD LIVER OIL [Concomitant]
     Active Substance: COD LIVER OIL
  5. BIOTIN [Concomitant]
     Active Substance: BIOTIN
     Dosage: (SOFTGEL)
  6. CHOLECALCIFEROL [Concomitant]
     Active Substance: CHOLECALCIFEROL
     Dosage: (SOFTGELS)
  7. FISH OIL [Concomitant]
     Active Substance: FISH OIL

REACTIONS (1)
  - Fatigue [Not Recovered/Not Resolved]
